FAERS Safety Report 6232269-5 (Version None)
Quarter: 2009Q2

REPORT INFORMATION
  Report Type: 
  Country: None (occurrence: None)
  Receive Date: 20090617
  Receipt Date: 20090608
  Transmission Date: 20091009
  Serious: Yes (Disabling, Other)
  Sender: FDA-Public Use
  Company Number: US-JNJFOC-20081205613

PATIENT
  Sex: Female
  Weight: 51.71 kg

DRUGS (19)
  1. REMICADE [Suspect]
     Route: 042
  2. REMICADE [Suspect]
     Route: 042
  3. REMICADE [Suspect]
     Route: 042
  4. REMICADE [Suspect]
     Indication: RHEUMATOID ARTHRITIS
     Route: 042
  5. LODINE [Concomitant]
     Indication: ARTHRITIS
     Route: 048
  6. FOSAMAX [Concomitant]
  7. CALCIUM WITH VITAMIN D [Concomitant]
  8. CALCIUM WITH ZINC [Concomitant]
  9. MULTI-VITAMINS [Concomitant]
  10. ACTOS [Concomitant]
  11. MELATONIN [Concomitant]
  12. TYLENOL (CAPLET) [Concomitant]
     Indication: PAIN
  13. ASCORBIC ACID [Concomitant]
  14. METHOTREXATE [Concomitant]
     Dosage: 4 TABS IN AM, 4 IN PM
  15. VITAMIN B COMPLEX CAP [Concomitant]
  16. PSORCON [Concomitant]
     Indication: PRURITUS
  17. LEVOTHYROXINE SODIUM [Concomitant]
  18. METOCLOPRAM [Concomitant]
  19. RANITIDINE [Concomitant]

REACTIONS (2)
  - EYE INFECTION VIRAL [None]
  - NECROTISING RETINITIS [None]
